FAERS Safety Report 19364256 (Version 1)
Quarter: 2021Q2

REPORT INFORMATION
  Report Type: Spontaneous
  Country: US (occurrence: US)
  Receive Date: 20210603
  Receipt Date: 20210603
  Transmission Date: 20210717
  Serious: Yes (Life-Threatening, Hospitalization)
  Sender: FDA-Public Use
  Company Number: US-TEVA-2021-US-1917615

PATIENT
  Sex: Female

DRUGS (9)
  1. DEXMEDETOMIDINE. [Concomitant]
     Active Substance: DEXMEDETOMIDINE
     Indication: SEDATIVE THERAPY
     Route: 050
  2. EPINEPHRINE. [Concomitant]
     Active Substance: EPINEPHRINE
     Indication: DRUG THERAPY
     Route: 065
  3. TREPROSTINIL. [Suspect]
     Active Substance: TREPROSTINIL
     Dosage: 30NG/KG/MIN
     Route: 058
  4. NITRIC OXIDE. [Suspect]
     Active Substance: NITRIC OXIDE
     Indication: NEWBORN PERSISTENT PULMONARY HYPERTENSION
     Dosage: STARTED ON DAY 1 OF LIFE
     Route: 055
  5. PHENYLEPHRINE [Concomitant]
     Active Substance: PHENYLEPHRINE HYDROCHLORIDE
     Indication: DRUG THERAPY
     Route: 065
  6. VASOPRESSIN. [Concomitant]
     Active Substance: VASOPRESSIN
     Indication: DRUG THERAPY
     Route: 065
  7. FENTANYL. [Concomitant]
     Active Substance: FENTANYL
     Indication: SEDATIVE THERAPY
     Dosage: HIGH?DOSE
     Route: 050
  8. TREPROSTINIL. [Suspect]
     Active Substance: TREPROSTINIL
     Indication: NEWBORN PERSISTENT PULMONARY HYPERTENSION
     Dosage: 4NG/KG/MIN STARTED ON DAY 8 OF LIFE
     Route: 058
  9. GLUCOSE [Suspect]
     Active Substance: DEXTROSE
     Indication: HYPOGLYCAEMIA NEONATAL
     Dosage: HIGH?RATE INFUSION
     Route: 050

REACTIONS (2)
  - Drug ineffective [Unknown]
  - Pulmonary oedema [Recovering/Resolving]
